FAERS Safety Report 25299742 (Version 1)
Quarter: 2025Q2

REPORT INFORMATION
  Report Type: Spontaneous
  Country: AT (occurrence: AT)
  Receive Date: 20250512
  Receipt Date: 20250512
  Transmission Date: 20250716
  Serious: Yes (Death, Other)
  Sender: GENMAB
  Company Number: AT-ABBVIE-6170175

PATIENT
  Age: 80 Year
  Sex: Male

DRUGS (3)
  1. EPCORITAMAB [Suspect]
     Active Substance: EPCORITAMAB
     Indication: Diffuse large B-cell lymphoma
     Route: 058
     Dates: start: 202408
  2. EPCORITAMAB [Suspect]
     Active Substance: EPCORITAMAB
     Route: 058
  3. EPCORITAMAB [Suspect]
     Active Substance: EPCORITAMAB
     Route: 058

REACTIONS (4)
  - Sepsis [Fatal]
  - Cytokine release syndrome [Recovered/Resolved]
  - Secondary immunodeficiency [Unknown]
  - Blood glucose abnormal [Unknown]
